FAERS Safety Report 6192513-X (Version None)
Quarter: 2009Q2

REPORT INFORMATION
  Report Type: 
  Country: None (occurrence: None)
  Receive Date: 20090518
  Receipt Date: 20090506
  Transmission Date: 20091009
  Serious: Yes (Other)
  Sender: FDA-Public Use
  Company Number: PHEH2009US04469

PATIENT
  Age: 70 Year
  Sex: Male

DRUGS (3)
  1. EXELON [Suspect]
     Indication: DEMENTIA
     Dosage: 4.6 MG/24 HRS.
     Route: 062
     Dates: start: 20090410, end: 20090416
  2. EXELON [Suspect]
     Dosage: 9.5 MG/24 HRS
     Route: 062
     Dates: start: 20090417
  3. INSULIN [Concomitant]
     Indication: DIABETES MELLITUS
     Dosage: UNK
     Route: 058
     Dates: start: 20090331

REACTIONS (7)
  - AGGRESSION [None]
  - AGITATION [None]
  - DELUSIONAL DISORDER, UNSPECIFIED TYPE [None]
  - HALLUCINATION [None]
  - INSOMNIA [None]
  - PSYCHOSEXUAL DISORDER [None]
  - RESTLESSNESS [None]
